FAERS Safety Report 6436089-8 (Version None)
Quarter: 2009Q4

REPORT INFORMATION
  Report Type: 
  Country: None (occurrence: None)
  Receive Date: 20091111
  Receipt Date: 20091109
  Transmission Date: 20100525
  Serious: Yes (Hospitalization, Other)
  Sender: FDA-Public Use
  Company Number: US-TEVA-214757USA

PATIENT

DRUGS (4)
  1. ROCURONIUM BROMIDE [Suspect]
     Indication: ANAESTHESIA
  2. SEVOFLURANE [Suspect]
     Indication: ANAESTHESIA
     Dosage: INCREMENTAL DOSES OF 2% AND 3%
  3. REMIFENTANIL [Suspect]
     Indication: ANAESTHESIA
     Route: 042
  4. FENTANYL [Suspect]
     Dosage: 1UG/KG

REACTIONS (1)
  - CARDIAC ARREST [None]
